FAERS Safety Report 17771904 (Version 4)
Quarter: 2020Q4

REPORT INFORMATION
  Report Type: Spontaneous
  Country: US (occurrence: US)
  Receive Date: 20200512
  Receipt Date: 20201201
  Transmission Date: 20210113
  Serious: Yes (Other)
  Sender: FDA-Public Use
  Company Number: US-SUNOVION-2020SUN001398

PATIENT
  Sex: Female

DRUGS (3)
  1. LATUDA [Suspect]
     Active Substance: LURASIDONE HYDROCHLORIDE
     Dosage: UNK
     Route: 048
     Dates: start: 201807
  2. LATUDA [Suspect]
     Active Substance: LURASIDONE HYDROCHLORIDE
     Dosage: UNK (ADJUSTED DOSE, EXTRA DOSE)
     Route: 048
  3. LATUDA [Suspect]
     Active Substance: LURASIDONE HYDROCHLORIDE
     Indication: BIPOLAR I DISORDER
     Dosage: UNK
     Route: 048
     Dates: start: 201807

REACTIONS (9)
  - Crying [Unknown]
  - Anxiety [Unknown]
  - Social avoidant behaviour [Unknown]
  - Fatigue [Unknown]
  - Product dose omission issue [Unknown]
  - Binge eating [Recovered/Resolved]
  - Depression suicidal [Unknown]
  - Intentional self-injury [Recovered/Resolved]
  - Extra dose administered [Unknown]
